FAERS Safety Report 25065202 (Version 1)
Quarter: 2025Q1

REPORT INFORMATION
  Report Type: Spontaneous
  Country: US (occurrence: US)
  Receive Date: 20250311
  Receipt Date: 20250311
  Transmission Date: 20250409
  Serious: Yes (Other)
  Sender: EISAI
  Company Number: US-Eisai-EC-2025-185453

PATIENT
  Sex: Female

DRUGS (3)
  1. LENVIMA [Suspect]
     Active Substance: LENVATINIB
     Indication: Renal cell carcinoma
  2. LENVIMA [Suspect]
     Active Substance: LENVATINIB
  3. KEYTRUDA [Suspect]
     Active Substance: PEMBROLIZUMAB
     Indication: Renal cell carcinoma

REACTIONS (9)
  - Adrenal insufficiency [Unknown]
  - Hypertension [Unknown]
  - Blood sodium decreased [Unknown]
  - Blood sodium decreased [Unknown]
  - Confusional state [Unknown]
  - Disorientation [Unknown]
  - Dry mouth [Unknown]
  - Anaemia [Unknown]
  - Weight decreased [Unknown]
